FAERS Safety Report 9663827 (Version 1)
Quarter: 2013Q4

REPORT INFORMATION
  Report Type: Spontaneous
  Country: US (occurrence: None)
  Receive Date: 20131030
  Receipt Date: 20131030
  Transmission Date: 20140711
  Serious: Yes (Other)
  Sender: FDA-Public Use
  Company Number: None

PATIENT
  Age: 47 Year
  Sex: Female
  Weight: 48.99 kg

DRUGS (11)
  1. LEVETIRACETAM [Suspect]
     Indication: MYOCLONIC EPILEPSY
     Dosage: 1/2 CUT OF 500MG DOSE, 2X/DY, BY MOUTH
     Route: 048
     Dates: start: 201112, end: 201307
  2. KEPPRA [Concomitant]
  3. BENICAR [Concomitant]
  4. FLUDROCORTISONE [Concomitant]
  5. CARTIA XT [Concomitant]
  6. B-2 [Concomitant]
  7. B-6 [Concomitant]
  8. MAGNESIUM [Concomitant]
  9. METHYLCOBALAMIN [Concomitant]
  10. OMEGA-3 FLAXSEEDS [Concomitant]
  11. LUBRICATING, PRESERVATIVE-FREE EYE-DROPS [Concomitant]

REACTIONS (2)
  - Investigation [None]
  - Product substitution issue [None]
